FAERS Safety Report 6304059-6 (Version None)
Quarter: 2009Q3

REPORT INFORMATION
  Report Type: 
  Country: None (occurrence: None)
  Receive Date: 20090810
  Receipt Date: 20090729
  Transmission Date: 20100115
  Serious: Yes (Other)
  Sender: FDA-Public Use
  Company Number: JP-PFIZER INC-2009249916

PATIENT
  Age: 25 Year

DRUGS (2)
  1. DIFLUCAN [Suspect]
     Dosage: 200 MG/DAY
  2. TRETINOIN [Interacting]

REACTIONS (3)
  - DRUG INTERACTION [None]
  - HYPERCALCAEMIA [None]
  - RENAL DISORDER [None]
